FAERS Safety Report 11735105 (Version 3)
Quarter: 2016Q1

REPORT INFORMATION
  Report Type: Spontaneous
  Country: JP (occurrence: JP)
  Receive Date: 20151113
  Receipt Date: 20160325
  Transmission Date: 20160525
  Serious: Yes (Hospitalization)
  Sender: FDA-Public Use
  Company Number: JP-PFIZER INC-2015380032

PATIENT
  Age: 8 Decade
  Sex: Male

DRUGS (1)
  1. INLYTA [Suspect]
     Active Substance: AXITINIB
     Indication: RENAL CELL CARCINOMA
     Dosage: 10 MG, DAILY
     Route: 048

REACTIONS (2)
  - Skin disorder [Unknown]
  - Pneumonia bacterial [Recovered/Resolved]
